FAERS Safety Report 8895396 (Version 3)
Quarter: 2013Q4

REPORT INFORMATION
  Report Type: Report from Study
  Country: US (occurrence: US)
  Receive Date: 20121108
  Receipt Date: 20131120
  Transmission Date: 20140711
  Serious: Yes (Death)
  Sender: FDA-Public Use
  Company Number: PHHO2012US016038

PATIENT
  Age: 70 Year
  Sex: Male

DRUGS (2)
  1. CICLOSPORIN [Suspect]
     Dosage: UNK
     Dates: start: 20070118
  2. ZORTRESS [Suspect]
     Indication: HEART TRANSPLANT
     Dosage: 1 MG, BID
     Route: 048
     Dates: start: 20090127, end: 20121010

REACTIONS (3)
  - Renal failure acute [Fatal]
  - Pneumonia [Fatal]
  - Pulmonary alveolar haemorrhage [Fatal]
